FAERS Safety Report 11340784 (Version 1)
Quarter: 2015Q3

REPORT INFORMATION
  Report Type: Spontaneous
  Country: IT (occurrence: IT)
  Receive Date: 20150805
  Receipt Date: 20150805
  Transmission Date: 20151125
  Serious: Yes (Hospitalization)
  Sender: FDA-Public Use
  Company Number: IT-ABBVIE-15P-083-1439261-00

PATIENT
  Age: 75 Year
  Sex: Female

DRUGS (3)
  1. DEPAKENE [Suspect]
     Active Substance: VALPROIC ACID
     Indication: PRODUCT USED FOR UNKNOWN INDICATION
     Dosage: EXTEMDED RELEASE TABLET
     Route: 048
     Dates: start: 20141012, end: 20141012
  2. LORAZEPAM. [Suspect]
     Active Substance: LORAZEPAM
     Indication: PRODUCT USED FOR UNKNOWN INDICATION
     Route: 048
     Dates: start: 20141012, end: 20141012
  3. SEROQUEL [Suspect]
     Active Substance: QUETIAPINE FUMARATE
     Indication: PRODUCT USED FOR UNKNOWN INDICATION
     Route: 048
     Dates: start: 20141012, end: 20141012

REACTIONS (1)
  - Sopor [Recovered/Resolved]

NARRATIVE: CASE EVENT DATE: 20141012
